FAERS Safety Report 18296833 (Version 2)
Quarter: 2021Q1

REPORT INFORMATION
  Report Type: Report from Study
  Country: US (occurrence: US)
  Receive Date: 20200922
  Receipt Date: 20210318
  Transmission Date: 20210419
  Serious: Yes (Other)
  Sender: FDA-Public Use
  Company Number: NVSC2020US257255

PATIENT
  Age: 3 Year
  Sex: Male

DRUGS (4)
  1. KYMRIAH [Suspect]
     Active Substance: TISAGENLECLEUCEL
     Dosage: UNK UNK, ONCE/SINGLE
     Route: 041
     Dates: start: 20201030
  2. FLUDARABINE [Concomitant]
     Active Substance: FLUDARABINE PHOSPHATE
     Indication: CHEMOTHERAPY
     Dosage: UNK
     Route: 065
  3. KYMRIAH [Suspect]
     Active Substance: TISAGENLECLEUCEL
     Indication: B-CELL TYPE ACUTE LEUKAEMIA
     Dosage: 1 DF, ONCE/SINGLE
     Route: 041
     Dates: start: 20200814
  4. CYCLOPHOSPHAMIDE. [Concomitant]
     Active Substance: CYCLOPHOSPHAMIDE
     Indication: CHEMOTHERAPY
     Dosage: UNK
     Route: 065

REACTIONS (8)
  - Off label use [Unknown]
  - Haemoglobin decreased [Unknown]
  - Lymphocyte count decreased [Unknown]
  - Hypogammaglobulinaemia [Not Recovered/Not Resolved]
  - White blood cell count decreased [Unknown]
  - Neutrophil count decreased [Unknown]
  - B-lymphocyte count abnormal [Unknown]
  - Haematocrit decreased [Unknown]
